FAERS Safety Report 8621939-7 (Version None)
Quarter: 2012Q3

REPORT INFORMATION
  Report Type: 
  Country: None (occurrence: None)
  Receive Date: 20120822
  Receipt Date: 20120822
  Transmission Date: 20120928
  Serious: Yes (Hospitalization)
  Sender: FDA-Public Use
  Company Number: None

PATIENT
  Age: 63 Year
  Sex: Male
  Weight: 86.2 kg

DRUGS (12)
  1. BACTRIM DS [Concomitant]
  2. VALGANCICLOVIR [Concomitant]
  3. IMMUNE GLOBULIN INTRAVENOUS (HUMAN) [Concomitant]
  4. NEULASTA [Concomitant]
  5. ALEMTUZUMAB [Suspect]
     Indication: CHRONIC LYMPHOCYTIC LEUKAEMIA
     Dosage: 30MG, MWF X 4 WKS, SC
     Route: 058
     Dates: start: 20120716, end: 20120809
  6. PHOSPHA NEUTRAL [Concomitant]
  7. LOSARTAN POTASSIUM AND HYDROCHLOROTHIAZIDE [Concomitant]
  8. VORICONAZOLE [Concomitant]
  9. ACYCLOVIR [Concomitant]
  10. METFORMIN HCL [Concomitant]
  11. OFATUMUMAB [Suspect]
     Indication: CHRONIC LYMPHOCYTIC LEUKAEMIA
     Dosage: 1000MG, Q28D, IV
     Route: 042
     Dates: start: 20120327, end: 20120716
  12. ATIVAN [Concomitant]

REACTIONS (1)
  - FEBRILE NEUTROPENIA [None]
